FAERS Safety Report 24939977 (Version 1)
Quarter: 2025Q1

REPORT INFORMATION
  Report Type: Spontaneous
  Country: US (occurrence: US)
  Receive Date: 20250207
  Receipt Date: 20250207
  Transmission Date: 20250408
  Serious: No
  Sender: STALLERGENES
  Company Number: US-STALCOR-2025-AER-00320

PATIENT
  Age: 11 Year
  Sex: Male

DRUGS (2)
  1. PALFORZIA [Suspect]
     Active Substance: PEANUT
     Indication: Food allergy
     Dosage: 20MG: LVL4: MIX CONTENTS OF CAPSULES WELL WITH SEMISOLID FOOD AS DIRECTED AND CONSUME ONCE DAILY AT
     Route: 048
     Dates: start: 202501
  2. PALFORZIA [Suspect]
     Active Substance: PEANUT
     Dosage: DOSE REDUCED TO LVL3-AT 12MG IN RESPONSE TO REPORTED AE
     Dates: start: 202501

REACTIONS (2)
  - Gastrointestinal disorder [Not Recovered/Not Resolved]
  - Pruritus [Not Recovered/Not Resolved]

NARRATIVE: CASE EVENT DATE: 20250101
